FAERS Safety Report 25095552 (Version 1)
Quarter: 2025Q1

REPORT INFORMATION
  Report Type: Report from Study
  Country: US (occurrence: US)
  Receive Date: 20250319
  Receipt Date: 20250319
  Transmission Date: 20250409
  Serious: Yes (Other)
  Sender: ALEXION PHARMACEUTICALS
  Company Number: US-ASTRAZENECA-202503USA006179US

PATIENT
  Age: 47 Year

DRUGS (1)
  1. STRENSIQ [Suspect]
     Active Substance: ASFOTASE ALFA
     Indication: Phosphorus metabolism disorder
     Dosage: 105 MILLIGRAM, SIX TIMES/WEEK
     Route: 065

REACTIONS (1)
  - Pneumonia [Not Recovered/Not Resolved]
